FAERS Safety Report 10678366 (Version 3)
Quarter: 2015Q1

REPORT INFORMATION
  Report Type: Report from Study
  Country: CN (occurrence: CN)
  Receive Date: 20141229
  Receipt Date: 20150217
  Transmission Date: 20150720
  Serious: Yes (Hospitalization)
  Sender: FDA-Public Use
  Company Number: CN-ASTELLAS-2014US020969

PATIENT
  Age: 46 Year
  Sex: Male
  Weight: 65 kg

DRUGS (8)
  1. PREDNISON [Suspect]
     Active Substance: PREDNISONE
     Indication: LIVER TRANSPLANT REJECTION
     Dosage: 10-80, ONCE DAILY
     Route: 048
     Dates: start: 20140301
  2. GELOMYRTOL [Concomitant]
     Indication: OTITIS MEDIA
     Dosage: UNK, UNKNOWN FREQ.
     Route: 048
     Dates: start: 20140714
  3. CEFUROXIME NA [Suspect]
     Active Substance: CEFUROXIME
     Indication: OTITIS MEDIA
     Dosage: UNK UNK, UNKNOWN FREQ.
     Route: 048
     Dates: start: 20140714
  4. MYFORTIC [Suspect]
     Active Substance: MYCOPHENOLATE SODIUM
     Indication: LIVER TRANSPLANT REJECTION
     Dosage: 720-1080, TWICE DAILY
     Route: 048
     Dates: start: 20140613
  5. WUZHI CAPSULE [Concomitant]
     Indication: PROPHYLAXIS
     Dosage: UNK, UNKNOWN FREQ.
     Route: 048
     Dates: start: 20140321
  6. ATG-FRESENIUS [Suspect]
     Active Substance: LAPINE T-LYMPHOCYTE IMMUNE GLOBULIN
     Indication: LIVER TRANSPLANT REJECTION
     Route: 042
     Dates: start: 20140226, end: 20140226
  7. PLENDIL [Suspect]
     Active Substance: FELODIPINE
     Indication: HYPERTENSION
     Route: 048
     Dates: start: 20140301
  8. TACROLIMUS. [Suspect]
     Active Substance: TACROLIMUS
     Indication: LIVER TRANSPLANT REJECTION
     Dosage: 6-10 MG, ONCE DAILY
     Route: 048
     Dates: start: 20140227

REACTIONS (1)
  - Complications of transplanted kidney [Recovering/Resolving]

NARRATIVE: CASE EVENT DATE: 20141204
